FAERS Safety Report 4964578-1 (Version None)
Quarter: 2006Q2

REPORT INFORMATION
  Report Type: 
  Country: None (occurrence: None)
  Receive Date: 20060406
  Receipt Date: 20060209
  Transmission Date: 20061013
  Serious: Yes (Other)
  Sender: FDA-Public Use
  Company Number: US-ROCHE-436189

PATIENT
  Age: 46 Year
  Sex: Female
  Weight: 64.9 kg

DRUGS (1)
  1. BONIVA [Suspect]
     Indication: OSTEOPOROSIS
     Dosage: DOSAGE REGIMEN: T.P.O
     Route: 048
     Dates: start: 20060202, end: 20060203

REACTIONS (4)
  - ARTHRALGIA [None]
  - CHEST PAIN [None]
  - CHILLS [None]
  - MYALGIA [None]
